FAERS Safety Report 4870929-9 (Version None)
Quarter: 2005Q4

REPORT INFORMATION
  Report Type: 
  Country: None (occurrence: None)
  Receive Date: 20051229
  Receipt Date: 20051219
  Transmission Date: 20060501
  Serious: Yes (Hospitalization)
  Sender: FDA-Public Use
  Company Number: 2005170581

PATIENT
  Age: 27 Year
  Sex: Male
  Weight: 52 kg

DRUGS (1)
  1. VORICONAZOLE (VORICONAZOLE) [Suspect]
     Indication: BRONCHOPULMONARY ASPERGILLOSIS
     Dates: start: 20051201, end: 20051216

REACTIONS (2)
  - HEPATIC ENZYME INCREASED [None]
  - POLYNEUROPATHY [None]
